FAERS Safety Report 8494730-2 (Version None)
Quarter: 2012Q2

REPORT INFORMATION
  Report Type: 
  Country: None (occurrence: None)
  Receive Date: 20120627
  Receipt Date: 20120613
  Transmission Date: 20120825
  Serious: Yes (Hospitalization)
  Sender: FDA-Public Use
  Company Number: DSJ-2012-10938

PATIENT
  Sex: Female

DRUGS (9)
  1. BENICAR HCT [Suspect]
     Indication: HYPERTENSION
     Dosage: 40/25 MG (1 IN 1 D),PER ORAL
     Route: 048
  2. METFORMIN HCL [Concomitant]
  3. OMEPRAZOLE [Concomitant]
  4. SPIRONOLACTONE [Suspect]
     Indication: HYPERTENSION
     Dosage: 25 MG,PER ORAL
     Route: 048
     Dates: start: 20120604
  5. ACETYLSALICYLIC ACID SRT [Concomitant]
  6. AMLODIPINE [Concomitant]
  7. BENICAR [Suspect]
     Indication: HYPERTENSION
     Dosage: 40 MG (40 MG,1 IN 1 D),PER ORAL
     Route: 048
  8. LEVOTHYROXINE SODIUM [Concomitant]
  9. SERTRALINE HYDROCHLORIDE [Concomitant]

REACTIONS (5)
  - KNEE ARTHROPLASTY [None]
  - OVERDOSE [None]
  - WEIGHT DECREASED [None]
  - HYPERTENSION [None]
  - DRUG RESISTANCE [None]
